FAERS Safety Report 16362280 (Version 1)
Quarter: 2019Q2

REPORT INFORMATION
  Report Type: Report from Study
  Country: US (occurrence: US)
  Receive Date: 20190528
  Receipt Date: 20190528
  Transmission Date: 20190711
  Serious: Yes (Life-Threatening, Hospitalization, Other)
  Sender: FDA-Public Use
  Company Number: US-PFIZER INC-2019219934

PATIENT
  Age: 51 Year
  Sex: Male

DRUGS (5)
  1. OMNIPAQUE [Concomitant]
     Active Substance: IOHEXOL
     Indication: SPINAL OSTEOARTHRITIS
     Dosage: UNK
  2. LIDOCAINE. [Concomitant]
     Active Substance: LIDOCAINE
     Indication: SPINAL OSTEOARTHRITIS
     Dosage: UNK
  3. METHYLPREDNISOLONE SODIUM SUCCINATE. [Concomitant]
     Active Substance: METHYLPREDNISOLONE SODIUM SUCCINATE
     Dosage: UNK
  4. ONDANSETRON [Concomitant]
     Active Substance: ONDANSETRON
     Dosage: UNK
  5. METHYLPREDNISOLONE ACETATE. [Suspect]
     Active Substance: METHYLPREDNISOLONE ACETATE
     Indication: SPINAL OSTEOARTHRITIS
     Dosage: UNK

REACTIONS (9)
  - Type I hypersensitivity [Unknown]
  - Erythema [Unknown]
  - Pruritus [Unknown]
  - Dysphonia [Unknown]
  - Anaphylactic reaction [Unknown]
  - Peripheral swelling [Unknown]
  - Reaction to excipient [Unknown]
  - Hypotension [Unknown]
  - Dysphagia [Unknown]
